FAERS Safety Report 17729686 (Version 1)
Quarter: 2020Q2

REPORT INFORMATION
  Report Type: Spontaneous
  Country: US (occurrence: US)
  Receive Date: 20200430
  Receipt Date: 20200430
  Transmission Date: 20200714
  Serious: No
  Sender: FDA-Public Use
  Company Number: US-AKRON, INC.-2083361

PATIENT
  Sex: Male

DRUGS (2)
  1. ZIOPTAN [Suspect]
     Active Substance: TAFLUPROST
     Route: 047
     Dates: start: 201911, end: 201911
  2. COSOPT PF [Suspect]
     Active Substance: DORZOLAMIDE HYDROCHLORIDE\TIMOLOL MALEATE
     Route: 047
     Dates: start: 201911, end: 201911

REACTIONS (4)
  - Ocular hyperaemia [Recovered/Resolved]
  - Skin exfoliation [Recovered/Resolved]
  - Eye swelling [Recovered/Resolved]
  - Eye irritation [Recovered/Resolved]

NARRATIVE: CASE EVENT DATE: 201911
